FAERS Safety Report 6959570-1 (Version None)
Quarter: 2010Q3

REPORT INFORMATION
  Report Type: 
  Country: None (occurrence: None)
  Receive Date: 20100830
  Receipt Date: 20100816
  Transmission Date: 20110219
  Serious: Yes (Hospitalization)
  Sender: FDA-Public Use
  Company Number: 2010P1000775

PATIENT
  Sex: Male

DRUGS (1)
  1. RIMSO-50 IRRIGATION 50% (W/W) (NO PREF. NAME) [Suspect]
     Indication: ACCIDENTAL EXPOSURE
     Dosage: 10 ML; X1; IV
     Route: 042
     Dates: start: 20100810, end: 20100810

REACTIONS (2)
  - HAEMATOCRIT DECREASED [None]
  - WRONG DRUG ADMINISTERED [None]
